FAERS Safety Report 9602504 (Version 3)
Quarter: 2013Q4

REPORT INFORMATION
  Report Type: Report from Study
  Country: DE (occurrence: DE)
  Receive Date: 20131007
  Receipt Date: 20131018
  Transmission Date: 20140711
  Serious: Yes (Hospitalization)
  Sender: FDA-Public Use
  Company Number: DE-ABBVIE-13P-062-1104537-00

PATIENT
  Age: 29 Year
  Sex: Female
  Weight: 42 kg

DRUGS (4)
  1. HUMIRA [Suspect]
     Indication: CROHN^S DISEASE
     Route: 058
     Dates: start: 20120227, end: 201305
  2. HUMIRA [Suspect]
     Dates: start: 201306
  3. AZATHIOPRINE [Concomitant]
     Indication: CROHN^S DISEASE
  4. ANTIBIOTIC DRUG [Concomitant]
     Indication: CROHN^S DISEASE

REACTIONS (2)
  - Intestinal fistula [Unknown]
  - Abscess intestinal [Recovered/Resolved]
